FAERS Safety Report 5488298-2 (Version None)
Quarter: 2007Q4

REPORT INFORMATION
  Report Type: 
  Country: None (occurrence: None)
  Receive Date: 20071017
  Receipt Date: 20071010
  Transmission Date: 20080405
  Serious: Yes (Hospitalization)
  Sender: FDA-Public Use
  Company Number: US-ROCHE-524089

PATIENT
  Age: 75 Year
  Sex: Female

DRUGS (4)
  1. BONIVA [Suspect]
     Indication: OSTEOPOROSIS
     Route: 048
     Dates: start: 20071001
  2. VITAMINE D [Suspect]
     Indication: DRUG USE FOR UNKNOWN INDICATION
     Dosage: 500,000.00 UNITS GIVEN INSTEAD OF 50,000.00 UNITS
     Route: 042
     Dates: start: 20071001, end: 20071001
  3. VITAMINE D [Suspect]
     Route: 042
     Dates: start: 20071001
  4. COUMADIN [Concomitant]
     Route: 048

REACTIONS (4)
  - BLOOD GLUCOSE INCREASED [None]
  - LABORATORY TEST ABNORMAL [None]
  - MEDICATION ERROR [None]
  - PSYCHOTIC DISORDER [None]
